FAERS Safety Report 6289210-9 (Version None)
Quarter: 2009Q3

REPORT INFORMATION
  Report Type: 
  Country: None (occurrence: None)
  Receive Date: 20090728
  Receipt Date: 20090723
  Transmission Date: 20100115
  Serious: Yes (Hospitalization)
  Sender: FDA-Public Use
  Company Number: 2009SP016540

PATIENT
  Age: 82 Year
  Sex: Female

DRUGS (3)
  1. DESLORATADINE [Suspect]
     Indication: CHRONIC SINUSITIS
     Dosage: PO
     Route: 048
  2. DESLORATADINE [Suspect]
     Indication: MULTIPLE ALLERGIES
     Dosage: PO
     Route: 048
  3. DESLORATADINE [Suspect]
     Indication: OFF LABEL USE
     Dosage: PO
     Route: 048

REACTIONS (5)
  - DRUG INEFFECTIVE [None]
  - FACIAL PAIN [None]
  - OROPHARYNGEAL PAIN [None]
  - PHARYNGEAL DISORDER [None]
  - SINUS DISORDER [None]
